FAERS Safety Report 8566546 (Version 5)
Quarter: 2012Q4

REPORT INFORMATION
  Report Type: 
  Country: BE (occurrence: BE)
  Receive Date: 20120517
  Receipt Date: 20120904
  Transmission Date: 20130627
  Serious: Yes (Other)
  Sender: FDA-Public Use
  Company Number: PHHO2012BE007302

PATIENT
  Age: 70 Year
  Sex: Female
  Weight: 49.9 kg

DRUGS (7)
  1. AFINITOR [Suspect]
     Indication: NEOPLASM
     Dosage: 2.5 mg, QW
     Route: 048
     Dates: start: 20120507, end: 20120511
  2. UNSPECIFIED INGREDIENT [Suspect]
     Indication: NEOPLASM
     Dosage: 200 mg, BID
     Route: 048
     Dates: start: 20120507, end: 20120511
  3. CIPRAMIL [Concomitant]
     Indication: DEPRESSION
     Dosage: 10 mg, QD
     Route: 048
     Dates: start: 200210
  4. MAGNESIUM SULFATE [Concomitant]
     Indication: HYPOMAGNESAEMIA
     Dosage: 3 g, QD
     Route: 042
     Dates: start: 20120503
  5. DAFALGAN [Concomitant]
     Indication: PAIN
     Dosage: 16 mg, QD
     Route: 048
     Dates: start: 201110, end: 20120511
  6. STEOVIT [Concomitant]
     Indication: OSTEOPOROSIS
     Dosage: 1 DF, QD
     Route: 048
     Dates: start: 201110
  7. LORMETAZEPAM [Concomitant]
     Indication: INSOMNIA
     Dosage: 1 mg, QD
     Route: 048
     Dates: start: 20120504

REACTIONS (1)
  - Myocardial infarction [Recovered/Resolved]
